FAERS Safety Report 5443450-7 (Version None)
Quarter: 2007Q3

REPORT INFORMATION
  Report Type: 
  Country: None (occurrence: None)
  Receive Date: 20070905
  Receipt Date: 20070814
  Transmission Date: 20080115
  Serious: Yes (Other)
  Sender: FDA-Public Use
  Company Number: BR-MERCK-0708BRA00086

PATIENT
  Sex: Male

DRUGS (1)
  1. TIMOPTIC [Suspect]
     Route: 047
     Dates: start: 20060101

REACTIONS (2)
  - ATRIOVENTRICULAR BLOCK [None]
  - DIZZINESS [None]
